FAERS Safety Report 7821885-2 (Version None)
Quarter: 2011Q4

REPORT INFORMATION
  Report Type: 
  Country: None (occurrence: None)
  Receive Date: 20111018
  Receipt Date: 20101008
  Transmission Date: 20120403
  Serious: No
  Sender: FDA-Public Use
  Company Number: US-ASTRAZENECA-2010SE37538

PATIENT
  Age: 20620 Day
  Sex: Male
  Weight: 95.7 kg

DRUGS (7)
  1. SYMBICORT [Suspect]
     Dosage: 120/4.5
     Route: 055
  2. PRAVASTATIN [Concomitant]
  3. SYMBICORT [Suspect]
     Indication: CHRONIC OBSTRUCTIVE PULMONARY DISEASE
     Dosage: 320MCG BID
     Route: 055
     Dates: start: 20100201
  4. SPIRIVA [Concomitant]
     Indication: CHRONIC OBSTRUCTIVE PULMONARY DISEASE
  5. ENERGY 2000 [Concomitant]
  6. M.V.I. [Concomitant]
  7. ASPIRIN [Concomitant]

REACTIONS (5)
  - ALOPECIA [None]
  - TINEA INFECTION [None]
  - ACNE [None]
  - RASH [None]
  - VISUAL ACUITY REDUCED [None]
